FAERS Safety Report 20863059 (Version 1)
Quarter: 2022Q2

REPORT INFORMATION
  Report Type: Spontaneous
  Country: US (occurrence: US)
  Receive Date: 20220523
  Receipt Date: 20220523
  Transmission Date: 20220721
  Serious: No
  Sender: FDA-Public Use
  Company Number: US-PFIZER INC-202200150333

PATIENT
  Age: 79 Year
  Sex: Male
  Weight: 81.65 kg

DRUGS (1)
  1. VYNDAMAX [Suspect]
     Active Substance: TAFAMIDIS
     Indication: Amyloidosis
     Dosage: UNK, 1X/DAY(60 TABLETS )
     Dates: start: 2018

REACTIONS (1)
  - Hypoacusis [Unknown]
